FAERS Safety Report 6745888-4 (Version None)
Quarter: 2010Q2

REPORT INFORMATION
  Report Type: 
  Country: None (occurrence: None)
  Receive Date: 20100528
  Receipt Date: 20100525
  Transmission Date: 20101027
  Serious: Yes (Hospitalization)
  Sender: FDA-Public Use
  Company Number: US-GILEAD-2010-0029430

PATIENT
  Sex: Female

DRUGS (8)
  1. LETAIRIS [Suspect]
     Indication: PULMONARY ARTERIAL HYPERTENSION
     Route: 048
     Dates: start: 20100126
  2. COUMADIN [Concomitant]
  3. ASA LO-DOSE [Concomitant]
  4. DIOVAN HCT [Concomitant]
  5. CELLCEPT [Concomitant]
  6. CYMBALTA [Concomitant]
  7. LYRICA [Concomitant]
  8. PREDNISONE TAB [Concomitant]

REACTIONS (1)
  - PULMONARY EMBOLISM [None]
